FAERS Safety Report 5985695-3 (Version None)
Quarter: 2008Q4

REPORT INFORMATION
  Report Type: 
  Country: None (occurrence: None)
  Receive Date: 20081208
  Receipt Date: 20080328
  Transmission Date: 20090506
  Serious: No
  Sender: FDA-Public Use
  Company Number: US-AMGEN-KDL270987

PATIENT
  Sex: Female

DRUGS (6)
  1. ENBREL [Suspect]
     Indication: RHEUMATOID ARTHRITIS
     Route: 058
     Dates: start: 20070801
  2. METHOTREXATE [Concomitant]
     Route: 048
     Dates: start: 20070401
  3. FOLIC ACID [Concomitant]
  4. MULTI-VITAMINS [Concomitant]
  5. PREMARIN [Concomitant]
  6. RELAFEN [Concomitant]

REACTIONS (5)
  - DYSPHONIA [None]
  - INFLUENZA LIKE ILLNESS [None]
  - MALAISE [None]
  - RESPIRATORY TRACT CONGESTION [None]
  - SINUSITIS [None]
